FAERS Safety Report 7496494-8 (Version None)
Quarter: 2011Q2

REPORT INFORMATION
  Report Type: 
  Country: None (occurrence: None)
  Receive Date: 20110523
  Receipt Date: 20110513
  Transmission Date: 20111010
  Serious: Yes (Hospitalization)
  Sender: FDA-Public Use
  Company Number: IT-ROCHE-771359

PATIENT
  Sex: Female
  Weight: 77 kg

DRUGS (9)
  1. DEXAMETHASONE [Concomitant]
     Indication: PROPHYLAXIS
     Dates: start: 20110403, end: 20110404
  2. BEVACIZUMAB [Suspect]
     Indication: NON-SMALL CELL LUNG CANCER
     Dosage: MOST RECENT DOSE PRIOR TO SAE: 14 MARCH 2011)
     Route: 065
     Dates: start: 20100924
  3. VITAMIN B-12 [Concomitant]
     Indication: PROPHYLAXIS
     Dates: start: 20100915, end: 20110209
  4. ATENOLOL [Concomitant]
     Indication: TACHYCARDIA
     Dates: start: 20110328
  5. IVABRADINE [Concomitant]
     Indication: TACHYCARDIA
     Dates: start: 20110328
  6. CISPLATIN [Suspect]
     Indication: NON-SMALL CELL LUNG CANCER
     Dosage: LAST DOSE PRIOR TO SAE: 06 DEC 2010
     Route: 042
     Dates: start: 20100924, end: 20101206
  7. PEMETREXED [Suspect]
     Indication: NON-SMALL CELL LUNG CANCER
     Dosage: MOST RECENT DOSE PRIOR TO SAE: 14 MARCH 2011)
     Route: 042
     Dates: start: 20100924
  8. FOLIC ACID [Concomitant]
     Indication: PROPHYLAXIS
     Dates: start: 20100915
  9. SIMVASTATIN [Concomitant]
     Dates: start: 20080101

REACTIONS (1)
  - PERICARDIAL EFFUSION [None]
